FAERS Safety Report 13954125 (Version 1)
Quarter: 2017Q3

REPORT INFORMATION
  Report Type: Spontaneous
  Country: US (occurrence: None)
  Receive Date: 20170909
  Receipt Date: 20170909
  Transmission Date: 20171128
  Serious: Yes (Hospitalization)
  Sender: FDA-Public Use
  Company Number: None

PATIENT
  Sex: Female
  Weight: 100.9 kg

DRUGS (2)
  1. DOXORUBICIN HYDROCHLORIDE. [Suspect]
     Active Substance: DOXORUBICIN HYDROCHLORIDE
     Dates: end: 20170612
  2. CYCLOPHOSPHAMIDE. [Suspect]
     Active Substance: CYCLOPHOSPHAMIDE
     Dates: end: 20170612

REACTIONS (13)
  - Dehydration [None]
  - Anaemia [None]
  - Influenza like illness [None]
  - Impaired gastric emptying [None]
  - Oropharyngeal pain [None]
  - Viral infection [None]
  - Oesophagitis [None]
  - Vomiting [None]
  - Upper respiratory tract infection [None]
  - Neutropenia [None]
  - Nausea [None]
  - Pain [None]
  - Pharyngitis [None]

NARRATIVE: CASE EVENT DATE: 20170622
